FAERS Safety Report 15853933 (Version 9)
Quarter: 2021Q3

REPORT INFORMATION
  Report Type: Spontaneous
  Country: US (occurrence: US)
  Receive Date: 20190122
  Receipt Date: 20210802
  Transmission Date: 20211014
  Serious: Yes (Other)
  Sender: FDA-Public Use
  Company Number: US-PFIZER INC-2019028538

PATIENT
  Age: 52 Year
  Sex: Female
  Weight: 82 kg

DRUGS (4)
  1. PROTONIX [Suspect]
     Active Substance: PANTOPRAZOLE SODIUM
     Indication: GASTROOESOPHAGEAL REFLUX DISEASE
     Dosage: 40 MG, 1X/DAY
  2. PROTONIX [Suspect]
     Active Substance: PANTOPRAZOLE SODIUM
     Indication: OESOPHAGOGASTRIC FUNDOPLASTY
     Dosage: 40 MG, ONE TO TWO TIMES A DAY
  3. PROTONIX [Suspect]
     Active Substance: PANTOPRAZOLE SODIUM
     Indication: IMPAIRED GASTRIC EMPTYING
  4. PROTONIX [Suspect]
     Active Substance: PANTOPRAZOLE SODIUM
     Indication: GASTROINTESTINAL BACTERIAL OVERGROWTH

REACTIONS (15)
  - Product physical issue [Unknown]
  - Choking [Unknown]
  - Umbilical hernia [Unknown]
  - Drug ineffective [Unknown]
  - Suspected counterfeit product [Unknown]
  - Incisional hernia [Unknown]
  - Vomiting [Unknown]
  - Condition aggravated [Unknown]
  - Abdominal hernia [Unknown]
  - Nausea [Unknown]
  - Retching [Unknown]
  - Abdominal discomfort [Unknown]
  - Headache [Unknown]
  - Dysphagia [Unknown]
  - Infection [Unknown]

NARRATIVE: CASE EVENT DATE: 20181231
